FAERS Safety Report 6965277-7 (Version None)
Quarter: 2010Q3

REPORT INFORMATION
  Report Type: 
  Country: None (occurrence: None)
  Receive Date: 20100901
  Receipt Date: 20100819
  Transmission Date: 20110219
  Serious: Yes (Hospitalization, Other)
  Sender: FDA-Public Use
  Company Number: JPI-P-011942

PATIENT
  Age: 27 Year
  Sex: Female

DRUGS (2)
  1. XYREM [Suspect]
     Indication: CATAPLEXY
     Dosage: 4.5GM (2.25 GM, 2 IN 1 D) ORAL; 5.5 GM (2.75, 2 IN 1 D) ORAL
     Route: 048
     Dates: start: 20100725, end: 20100101
  2. XYREM [Suspect]
     Indication: CATAPLEXY
     Dosage: 4.5GM (2.25 GM, 2 IN 1 D) ORAL; 5.5 GM (2.75, 2 IN 1 D) ORAL
     Route: 048
     Dates: start: 20100101, end: 20100801

REACTIONS (4)
  - CYST [None]
  - INCISION SITE INFECTION [None]
  - INFECTED CYST [None]
  - THROAT IRRITATION [None]
